FAERS Safety Report 7488453-6 (Version None)
Quarter: 2011Q2

REPORT INFORMATION
  Report Type: 
  Country: None (occurrence: None)
  Receive Date: 20110518
  Receipt Date: 20110506
  Transmission Date: 20111010
  Serious: Yes (Hospitalization, Other)
  Sender: FDA-Public Use
  Company Number: PHHY2010CA28503

PATIENT
  Sex: Female

DRUGS (2)
  1. SANDOSTATIN LAR [Suspect]
     Indication: NEUROENDOCRINE TUMOUR
     Dosage: 20 MG, BIW
     Route: 030
     Dates: start: 20030420
  2. DILAUDID [Concomitant]
     Dosage: 1-2 BOLUS FOR FEW DAYS

REACTIONS (11)
  - FEELING ABNORMAL [None]
  - PALLIATIVE CARE [None]
  - SOMNOLENCE [None]
  - INTESTINAL OBSTRUCTION [None]
  - PAIN [None]
  - ASTHENIA [None]
  - OEDEMA PERIPHERAL [None]
  - MALAISE [None]
  - NEOPLASM [None]
  - EXCORIATION [None]
  - BLOOD GLUCOSE INCREASED [None]
